FAERS Safety Report 5645872-8 (Version None)
Quarter: 2008Q1

REPORT INFORMATION
  Report Type: 
  Country: None (occurrence: None)
  Receive Date: 20080229
  Receipt Date: 20080218
  Transmission Date: 20080703
  Serious: Yes (Hospitalization, Other)
  Sender: FDA-Public Use
  Company Number: JP-PFIZER INC-2008012181

PATIENT
  Age: 59 Year
  Sex: Female
  Weight: 50 kg

DRUGS (10)
  1. SOLANAX [Suspect]
     Route: 048
     Dates: start: 20071225, end: 20080110
  2. ZOLOFT [Suspect]
     Route: 048
     Dates: start: 20071219, end: 20080110
  3. AMLODIN [Suspect]
     Route: 048
     Dates: start: 20071214, end: 20080110
  4. LOXONIN [Suspect]
     Route: 048
     Dates: start: 20071214, end: 20080110
  5. COLONEL [Suspect]
     Route: 048
     Dates: start: 20071225, end: 20080110
  6. FAMOTIDINE [Suspect]
     Route: 048
  7. NEUROTROPIN [Concomitant]
     Route: 048
     Dates: start: 20071225, end: 20080110
  8. MYSLEE [Concomitant]
     Route: 048
     Dates: start: 20071225
  9. LENDORMIN [Concomitant]
     Route: 048
     Dates: start: 20071214, end: 20080110
  10. NAUZELIN [Concomitant]
     Route: 048
     Dates: start: 20071219, end: 20080110

REACTIONS (3)
  - PYELONEPHRITIS ACUTE [None]
  - RENAL FAILURE ACUTE [None]
  - SEPSIS [None]
